FAERS Safety Report 9460266 (Version 2)
Quarter: 2013Q3

REPORT INFORMATION
  Report Type: Spontaneous
  Country: JP (occurrence: JP)
  Receive Date: 20130815
  Receipt Date: 20130822
  Transmission Date: 20140515
  Serious: Yes (Other)
  Sender: FDA-Public Use
  Company Number: JP-PFIZER INC-2013236998

PATIENT
  Age: 74 Year
  Sex: Male

DRUGS (2)
  1. GABAPEN [Suspect]
     Dosage: 800 MG/DAY
  2. LEVETIRACETAM [Concomitant]
     Dosage: 3000 MG/DAY
     Route: 048

REACTIONS (1)
  - Creatinine renal clearance decreased [Unknown]
